FAERS Safety Report 5839303-2 (Version None)
Quarter: 2008Q3

REPORT INFORMATION
  Report Type: 
  Country: None (occurrence: None)
  Receive Date: 20080808
  Receipt Date: 20080729
  Transmission Date: 20090109
  Serious: Yes (Life-Threatening)
  Sender: FDA-Public Use
  Company Number: JP-PFIZER INC-2008063988

PATIENT
  Age: 58 Year
  Sex: Male

DRUGS (3)
  1. VFEND [Suspect]
     Indication: MYCOTIC CORNEAL ULCER
     Route: 042
     Dates: start: 20080714, end: 20080722
  2. WARFARIN SODIUM [Suspect]
     Indication: THROMBOSIS PROPHYLAXIS
     Route: 048
     Dates: start: 20080714, end: 20080722
  3. FUROSEMIDE [Concomitant]
     Dates: start: 20080702, end: 20080713

REACTIONS (2)
  - DUODENITIS HAEMORRHAGIC [None]
  - SWELLING [None]
